FAERS Safety Report 21789475 (Version 1)
Quarter: 2022Q4

REPORT INFORMATION
  Report Type: Report from Study
  Country: US (occurrence: US)
  Receive Date: 20221228
  Receipt Date: 20221228
  Transmission Date: 20230113
  Serious: No
  Sender: FDA-Public Use
  Company Number: US-ABBVIE-4217727

PATIENT
  Age: 62 Year
  Sex: Female

DRUGS (3)
  1. HUMIRA [Suspect]
     Active Substance: ADALIMUMAB
     Indication: Crohn^s disease
     Dosage: DAY ONE
     Route: 058
     Dates: end: 202112
  2. HUMIRA [Suspect]
     Active Substance: ADALIMUMAB
  3. COVID-19 vaccine [Concomitant]
     Indication: COVID-19 immunisation
     Dosage: FREQUENCY: ONE TIME ONCE
     Route: 030

REACTIONS (1)
  - Arthralgia [Recovered/Resolved]

NARRATIVE: CASE EVENT DATE: 20211201
